FAERS Safety Report 15156432 (Version 2)
Quarter: 2018Q3

REPORT INFORMATION
  Report Type: Spontaneous
  Country: US (occurrence: US)
  Receive Date: 20180717
  Receipt Date: 20180724
  Transmission Date: 20181010
  Serious: Yes (Hospitalization)
  Sender: FDA-Public Use
  Company Number: US-ACTELION-A-NJ2018-175006

PATIENT
  Age: 76 Year
  Sex: Male
  Weight: 84.81 kg

DRUGS (2)
  1. VELETRI [Suspect]
     Active Substance: EPOPROSTENOL
     Indication: PULMONARY ARTERIAL HYPERTENSION
     Dosage: 4 NG/KG, PER MIN
     Route: 042
  2. ELIQUIS [Concomitant]
     Active Substance: APIXABAN

REACTIONS (6)
  - Nausea [Unknown]
  - Oxygen saturation decreased [Unknown]
  - Asthenia [Unknown]
  - Headache [Unknown]
  - Anxiety [Unknown]
  - Decreased appetite [Unknown]

NARRATIVE: CASE EVENT DATE: 201806
